FAERS Safety Report 11651441 (Version 3)
Quarter: 2015Q4

REPORT INFORMATION
  Report Type: Spontaneous
  Country: US (occurrence: US)
  Receive Date: 20151022
  Receipt Date: 20151023
  Transmission Date: 20160304
  Serious: Yes (Other)
  Sender: FDA-Public Use
  Company Number: US-TEVA-602000ACC

PATIENT
  Sex: Female

DRUGS (1)
  1. PARAGARD T 380A [Suspect]
     Active Substance: COPPER
     Indication: CONTRACEPTION
     Dates: start: 20150920

REACTIONS (4)
  - Device dislocation [Unknown]
  - Complication of device insertion [Unknown]
  - Haemorrhage [Unknown]
  - Procedural pain [Unknown]

NARRATIVE: CASE EVENT DATE: 20150920
